FAERS Safety Report 4537666-1 (Version None)
Quarter: 2004Q4

REPORT INFORMATION
  Report Type: 
  Country: None (occurrence: None)
  Receive Date: 20041216
  Receipt Date: 20040902
  Transmission Date: 20050328
  Serious: Yes (Other)
  Sender: FDA-Public Use
  Company Number: HQWYE831003SEP04

PATIENT
  Age: 22 Year
  Sex: Female
  Weight: 76.27 kg

DRUGS (1)
  1. EFFEXOR XR [Suspect]
     Indication: MAJOR DEPRESSION
     Dosage: 225 MG 1X PER 1 DAY, ORAL
     Route: 048
     Dates: start: 20040705, end: 20040901

REACTIONS (3)
  - NIGHTMARE [None]
  - SLEEP DISORDER [None]
  - SUICIDAL IDEATION [None]
